FAERS Safety Report 10982234 (Version 7)
Quarter: 2019Q1

REPORT INFORMATION
  Report Type: Report from Study
  Country: DE (occurrence: DE)
  Receive Date: 20150403
  Receipt Date: 20190128
  Transmission Date: 20190417
  Serious: Yes (Hospitalization)
  Sender: FDA-Public Use
  Company Number: DE-ROCHE-1515156

PATIENT
  Age: 54 Year
  Sex: Female
  Weight: 64 kg

DRUGS (41)
  1. METAMIZOL [Concomitant]
     Active Substance: METAMIZOLE SODIUM
     Indication: MUSCLE SPASMS
     Route: 042
     Dates: start: 20150314, end: 20150318
  2. CIPROFLOXACIN. [Concomitant]
     Active Substance: CIPROFLOXACIN
     Route: 042
     Dates: start: 20141202, end: 20150206
  3. OXALIPLATIN. [Concomitant]
     Active Substance: OXALIPLATIN
     Indication: COLORECTAL CANCER
     Route: 042
     Dates: start: 20150224, end: 20150224
  4. 5-FLUOROURACIL [Concomitant]
     Active Substance: FLUOROURACIL
     Route: 040
     Dates: start: 20150324, end: 20150324
  5. CIPROFLOXACIN. [Concomitant]
     Active Substance: CIPROFLOXACIN
     Route: 042
     Dates: start: 20150414, end: 20150414
  6. CIPROFLOXACIN. [Concomitant]
     Active Substance: CIPROFLOXACIN
     Route: 048
     Dates: start: 20150318, end: 20150320
  7. IBEROGAST [Concomitant]
     Active Substance: HERBALS
     Indication: MUSCLE SPASMS
     Route: 048
     Dates: start: 20150311, end: 20150314
  8. CLEXANE [Concomitant]
     Active Substance: ENOXAPARIN SODIUM
     Dosage: ONCE DAILY
     Route: 058
     Dates: start: 20150314, end: 20150318
  9. LOPERMID [Concomitant]
     Indication: DIARRHOEA
     Route: 048
     Dates: start: 20150313, end: 20150318
  10. KEVATRIL [Concomitant]
     Active Substance: GRANISETRON HYDROCHLORIDE
     Indication: NAUSEA
     Dosage: ON D1 CYCLICAL
     Route: 042
     Dates: start: 20140430, end: 20150519
  11. TRAMAL [Concomitant]
     Active Substance: TRAMADOL
     Dosage: 20 DROPS AS REQUIRED
     Route: 065
     Dates: start: 20150314, end: 20150315
  12. 5-FLUOROURACIL [Concomitant]
     Active Substance: FLUOROURACIL
     Route: 041
     Dates: start: 20150324, end: 20150325
  13. METOCLOPRAMIDE. [Concomitant]
     Active Substance: METOCLOPRAMIDE
     Indication: VOMITING
     Dosage: 1 AMPOULE 3 DAILY
     Route: 042
     Dates: start: 20150315
  14. METRONIDAZOLE. [Concomitant]
     Active Substance: METRONIDAZOLE
     Route: 042
     Dates: start: 20150318, end: 20150320
  15. CEFTRIAXONE. [Concomitant]
     Active Substance: CEFTRIAXONE
     Route: 042
     Dates: start: 20150314, end: 20150318
  16. BEVACIZUMAB. [Suspect]
     Active Substance: BEVACIZUMAB
     Indication: COLORECTAL CANCER METASTATIC
     Dosage: LAST DOSE PRIOR TO SAE: 14/OCT/2014
     Route: 042
     Dates: start: 20140430, end: 20150224
  17. 5-FLUOROURACIL [Concomitant]
     Active Substance: FLUOROURACIL
     Route: 041
     Dates: start: 20140430, end: 20150204
  18. CIPROFLOXACIN. [Concomitant]
     Active Substance: CIPROFLOXACIN
     Route: 042
     Dates: start: 20150324, end: 20150324
  19. ATROPIN [Concomitant]
     Active Substance: ATROPINE
     Indication: DIARRHOEA
     Dosage: BEFORE IRINOTECAN
     Route: 058
     Dates: start: 20140430, end: 20150203
  20. PANTOPRAZOL [Concomitant]
     Active Substance: PANTOPRAZOLE SODIUM
     Indication: PROPHYLAXIS AGAINST GASTROINTESTINAL ULCER
     Route: 048
     Dates: start: 20140409
  21. DIMENHYDRINATE. [Concomitant]
     Active Substance: DIMENHYDRINATE
     Indication: VOMITING
     Dosage: 1 AMPULE
     Route: 042
     Dates: start: 20150318
  22. GRANOCYTE [Concomitant]
     Active Substance: LENOGRASTIM
     Indication: NEUTROPENIA
     Dosage: 13 MIO. IU/ML
     Route: 058
     Dates: start: 20150407, end: 20150409
  23. OXALIPLATIN. [Concomitant]
     Active Substance: OXALIPLATIN
     Route: 042
     Dates: start: 20150414, end: 20150414
  24. METAMIZOL [Concomitant]
     Active Substance: METAMIZOLE SODIUM
     Route: 042
     Dates: start: 20150318
  25. METRONIDAZOLE. [Concomitant]
     Active Substance: METRONIDAZOLE
     Route: 048
     Dates: start: 20150318, end: 20150320
  26. NOVAMINSULFON [Concomitant]
     Active Substance: METAMIZOLE
     Indication: PAIN
     Route: 048
     Dates: start: 20140507
  27. VERGENTAN [Concomitant]
     Active Substance: ALIZAPRIDE HYDROCHLORIDE
     Indication: NAUSEA
     Dosage: ON D2 AND D3
     Route: 048
     Dates: start: 20140501, end: 20150521
  28. XELODA [Suspect]
     Active Substance: CAPECITABINE
     Indication: COLORECTAL CANCER
     Dosage: D1-D14 EVERY 3 WEEKS
     Route: 048
     Dates: start: 20150224, end: 20150309
  29. 5-FLUOROURACIL [Concomitant]
     Active Substance: FLUOROURACIL
     Route: 040
     Dates: start: 20150414, end: 20150414
  30. POTASSIUM CHLORIDE. [Concomitant]
     Active Substance: POTASSIUM CHLORIDE
     Route: 065
     Dates: end: 20150318
  31. IRINOTECAN [Concomitant]
     Active Substance: IRINOTECAN
     Indication: COLORECTAL CANCER
     Route: 042
     Dates: start: 20140430, end: 20150203
  32. 5-FLUOROURACIL [Concomitant]
     Active Substance: FLUOROURACIL
     Indication: COLORECTAL CANCER
     Route: 040
     Dates: start: 20140430, end: 20150203
  33. FOLINIC ACID [Concomitant]
     Active Substance: LEUCOVORIN
     Dosage: 660 MG ON 24-MAR-2015, 528 ON 14-APR-2015
     Route: 042
     Dates: start: 20141118, end: 20150414
  34. CIPROFLOXACIN. [Concomitant]
     Active Substance: CIPROFLOXACIN
     Indication: NEUTROPENIA
     Route: 042
     Dates: start: 20141118, end: 20141118
  35. FORTECORTIN [Concomitant]
     Active Substance: DEXAMETHASONE
     Indication: NAUSEA
     Dosage: ON D1 CYCLICAL
     Route: 042
     Dates: start: 20140430, end: 20150521
  36. 5-FLUOROURACIL [Concomitant]
     Active Substance: FLUOROURACIL
     Dosage: ONCE
     Route: 041
     Dates: start: 20150106, end: 20150107
  37. 5-FLUOROURACIL [Concomitant]
     Active Substance: FLUOROURACIL
     Route: 041
     Dates: start: 20150414, end: 20150414
  38. FOLINIC ACID [Concomitant]
     Active Substance: LEUCOVORIN
     Indication: COLORECTAL CANCER
     Route: 042
     Dates: start: 20140430
  39. CIPROFLOXACIN. [Concomitant]
     Active Substance: CIPROFLOXACIN
     Indication: COLORECTAL CANCER
     Route: 042
     Dates: start: 20140430, end: 20150414
  40. METOCLOPRAMIDE. [Concomitant]
     Active Substance: METOCLOPRAMIDE
     Route: 042
     Dates: start: 20150324
  41. OXALIPLATIN. [Concomitant]
     Active Substance: OXALIPLATIN
     Route: 042
     Dates: start: 20150324, end: 20150324

REACTIONS (1)
  - General physical health deterioration [Recovered/Resolved]

NARRATIVE: CASE EVENT DATE: 20150314
